FAERS Safety Report 16358378 (Version 4)
Quarter: 2019Q4

REPORT INFORMATION
  Report Type: Report from Study
  Country: US (occurrence: US)
  Receive Date: 20190527
  Receipt Date: 20191220
  Transmission Date: 20200122
  Serious: Yes (Other)
  Sender: FDA-Public Use
  Company Number: PHHY2019US120349

PATIENT
  Age: 46 Year
  Sex: Female

DRUGS (1)
  1. GILENYA [Suspect]
     Active Substance: FINGOLIMOD HYDROCHLORIDE
     Indication: MULTIPLE SCLEROSIS
     Dosage: UNK, QD
     Route: 048

REACTIONS (12)
  - Migraine [Unknown]
  - Back pain [Recovered/Resolved]
  - Eye pain [Not Recovered/Not Resolved]
  - Sinus congestion [Recovered/Resolved]
  - Musculoskeletal chest pain [Recovered/Resolved]
  - Lymphocyte count decreased [Unknown]
  - Type 2 diabetes mellitus [Unknown]
  - Cough [Recovered/Resolved]
  - Hypertension [Recovered/Resolved]
  - White blood cell count decreased [Unknown]
  - Menorrhagia [Recovered/Resolved]
  - Vision blurred [Not Recovered/Not Resolved]

NARRATIVE: CASE EVENT DATE: 20180416
